FAERS Safety Report 10029587 (Version 1)
Quarter: 2014Q1

REPORT INFORMATION
  Report Type: Spontaneous
  Country: US (occurrence: None)
  Receive Date: 20140320
  Receipt Date: 20140320
  Transmission Date: 20141002
  Serious: Yes (Hospitalization)
  Sender: FDA-Public Use
  Company Number: None

PATIENT
  Age: 54 Year
  Sex: Male
  Weight: 108.86 kg

DRUGS (18)
  1. DEPO-TESTOSTERONE [Suspect]
     Indication: TESTICULAR FAILURE
     Dosage: 1ML  EVERY 2 WEEKS  INTRAMUSCULAR
     Route: 030
     Dates: start: 20120213
  2. ASPIRIN [Concomitant]
  3. VIT D [Concomitant]
  4. CO Q 10 [Concomitant]
  5. FISH OIL [Concomitant]
  6. ALLOPURINOL [Concomitant]
  7. COLCRYS [Concomitant]
  8. JANUMET XR [Concomitant]
  9. LISINOPRIL [Concomitant]
  10. TRILIPIX [Concomitant]
  11. BYSTOLIC [Concomitant]
  12. LEVOXYL [Concomitant]
  13. LORTISONE [Concomitant]
  14. GABAPENTIN [Concomitant]
  15. INDOCIN [Concomitant]
  16. SYMBICORT [Concomitant]
  17. HUMULIN 70/30 [Concomitant]
  18. NORVASC [Concomitant]

REACTIONS (2)
  - Cerebrovascular accident [None]
  - Cerebral small vessel ischaemic disease [None]
